FAERS Safety Report 21185099 (Version 1)
Quarter: 2022Q3

REPORT INFORMATION
  Report Type: Spontaneous
  Country: US (occurrence: None)
  Receive Date: 20220808
  Receipt Date: 20220808
  Transmission Date: 20221026
  Serious: No
  Sender: FDA-Public Use
  Company Number: None

PATIENT
  Sex: Female

DRUGS (1)
  1. HUMIRA [Suspect]
     Active Substance: ADALIMUMAB
     Indication: Polyarthritis
     Dosage: OTHER FREQUENCY : EVERY14DAYS;?
     Route: 042
     Dates: start: 20220712

REACTIONS (2)
  - Adverse drug reaction [None]
  - Therapy cessation [None]
